FAERS Safety Report 7597546-4 (Version None)
Quarter: 2011Q3

REPORT INFORMATION
  Report Type: 
  Country: None (occurrence: None)
  Receive Date: 20110708
  Receipt Date: 20110701
  Transmission Date: 20111222
  Serious: Yes (Hospitalization)
  Sender: FDA-Public Use
  Company Number: PHHO2009US01989

PATIENT
  Sex: Female
  Weight: 129 kg

DRUGS (4)
  1. ACTOS [Concomitant]
     Indication: DIABETES MELLITUS
  2. ALDACTONE [Concomitant]
  3. GLIMEPIRIDE [Concomitant]
  4. TASIGNA [Suspect]
     Indication: CHRONIC MYELOID LEUKAEMIA
     Dosage: 400 MG, BID
     Route: 048
     Dates: start: 20080305, end: 20090105

REACTIONS (6)
  - DYSPNOEA [None]
  - NON-CARDIAC CHEST PAIN [None]
  - STRESS [None]
  - CHEST DISCOMFORT [None]
  - RENAL FAILURE CHRONIC [None]
  - URINARY TRACT INFECTION [None]
